APPROVED DRUG PRODUCT: DASATINIB
Active Ingredient: DASATINIB
Strength: 140MG
Dosage Form/Route: TABLET;ORAL
Application: A203180 | Product #002 | TE Code: AB
Applicant: APOTEX INC
Approved: Nov 23, 2021 | RLD: No | RS: No | Type: RX